FAERS Safety Report 22647008 (Version 1)
Quarter: 2023Q2

REPORT INFORMATION
  Report Type: Spontaneous
  Country: IT (occurrence: IT)
  Receive Date: 20230627
  Receipt Date: 20230627
  Transmission Date: 20230721
  Serious: Yes (Other)
  Sender: FDA-Public Use
  Company Number: IT-002147023-NVSC2023IT125145

PATIENT
  Age: 84 Year
  Sex: Female

DRUGS (1)
  1. GEMCITABINE HYDROCHLORIDE [Suspect]
     Active Substance: GEMCITABINE HYDROCHLORIDE
     Indication: Lung adenocarcinoma
     Dosage: UNK (1 LINE WITH GEMCITABINE IN A DEDICATED DOSE FOR ADVANCED AGE)
     Route: 065
     Dates: start: 202301

REACTIONS (2)
  - Lung adenocarcinoma [Unknown]
  - Malignant neoplasm progression [Unknown]
